FAERS Safety Report 5970407-X (Version None)
Quarter: 2008Q4

REPORT INFORMATION
  Report Type: 
  Country: None (occurrence: None)
  Receive Date: 20081126
  Receipt Date: 20081009
  Transmission Date: 20090506
  Serious: No
  Sender: FDA-Public Use
  Company Number: US-ABBOTT-08P-163-0484581-00

PATIENT
  Age: 62 Year
  Sex: Male
  Weight: 83.99 kg

DRUGS (2)
  1. SIMCOR [Suspect]
     Indication: BLOOD CHOLESTEROL INCREASED
     Route: 048
     Dates: start: 20080403, end: 20080509
  2. SIMCOR [Suspect]
     Indication: BLOOD TRIGLYCERIDES INCREASED

REACTIONS (4)
  - FEELING ABNORMAL [None]
  - NAUSEA [None]
  - PARAESTHESIA [None]
  - SKIN BURNING SENSATION [None]
